FAERS Safety Report 12883399 (Version 2)
Quarter: 2017Q3

REPORT INFORMATION
  Report Type: Report from Study
  Country: None (occurrence: BR)
  Receive Date: 20161025
  Receipt Date: 20170720
  Transmission Date: 20171127
  Serious: Yes (Hospitalization, Other)
  Sender: FDA-Public Use
  Company Number: BR-ABBVIE-16P-020-1762832-00

PATIENT
  Age: 47 Year
  Sex: Female
  Weight: 79 kg

DRUGS (9)
  1. LASIX [Concomitant]
     Active Substance: FUROSEMIDE
     Indication: SWELLING
     Dosage: DAILY DOSE: 40 MG; IN THE MORNING
  2. DORENE [Concomitant]
     Indication: PAIN
     Dosage: 1 TABLET AT NIGHT, TOGHETER WITH TRAMAL; SOMETIMES, WHEN SHE HAS INTENSE PAIN
  3. ATORVASTATIN [Concomitant]
     Active Substance: ATORVASTATIN
     Indication: BLOOD CHOLESTEROL ABNORMAL
     Dosage: DSAILY DOSE:1 TABLET; AT SLEEP TIME
     Dates: start: 2013
  4. VALIUM [Concomitant]
     Active Substance: DIAZEPAM
     Indication: SLEEP DISORDER
     Dosage: INTERCALATED WITH RIVOTRIL
     Dates: start: 1996
  5. BENICAR [Concomitant]
     Active Substance: OLMESARTAN MEDOXOMIL
     Indication: BLOOD PRESSURE ABNORMAL
     Dosage: DAILY DOSE: 1 TABLET; AT NIGHT (AT 08PM)
  6. SYNTHROID [Suspect]
     Active Substance: LEVOTHYROXINE SODIUM
     Indication: HYPOTHYROIDISM
     Dosage: DAILY DOSE:25 MG;IN THE MORNING, AFTER FASTING
     Route: 048
     Dates: end: 201702
  7. ANCORON [Concomitant]
     Active Substance: AMIODARONE HYDROCHLORIDE
     Indication: ARRHYTHMIA
     Dosage: DAILY DOSE:1 TABLET; AT NIGHT (08PM)
  8. VALIUM [Concomitant]
     Active Substance: DIAZEPAM
     Indication: NERVOUSNESS
  9. PURAN [Concomitant]
     Active Substance: LEVOTHYROXINE SODIUM
     Indication: HYPOTHYROIDISM
     Dosage: IN FASTING
     Dates: start: 201702

REACTIONS (21)
  - Cardiac arrest [Unknown]
  - Weight increased [Not Recovered/Not Resolved]
  - Tremor [Not Recovered/Not Resolved]
  - Fall [Unknown]
  - Mental disorder [Recovered/Resolved]
  - Spinal cord disorder [Recovered/Resolved]
  - Rib fracture [Unknown]
  - Malaise [Unknown]
  - Pain [Not Recovered/Not Resolved]
  - Fall [Unknown]
  - Depression [Not Recovered/Not Resolved]
  - Vertigo [Not Recovered/Not Resolved]
  - Back pain [Not Recovered/Not Resolved]
  - Sjogren^s syndrome [Not Recovered/Not Resolved]
  - Tremor [Not Recovered/Not Resolved]
  - Swelling [Not Recovered/Not Resolved]
  - Syncope [Unknown]
  - Post procedural complication [Recovered/Resolved]
  - Malnutrition [Recovered/Resolved]
  - Fibromyalgia [Not Recovered/Not Resolved]
  - Alopecia [Not Recovered/Not Resolved]

NARRATIVE: CASE EVENT DATE: 199910
